FAERS Safety Report 25393824 (Version 3)
Quarter: 2025Q2

REPORT INFORMATION
  Report Type: Report from Study
  Country: US (occurrence: US)
  Receive Date: 20250604
  Receipt Date: 20250626
  Transmission Date: 20250716
  Serious: Yes (Hospitalization)
  Sender: CSL BEHRING
  Company Number: US-BEH-2025208296

PATIENT
  Age: 65 Year
  Sex: Male
  Weight: 99.8 kg

DRUGS (2)
  1. HIZENTRA [Suspect]
     Active Substance: HUMAN IMMUNOGLOBULIN G
     Indication: Chronic inflammatory demyelinating polyradiculoneuropathy
     Dosage: 30 G, QW
     Route: 065
  2. PRIVIGEN [Suspect]
     Active Substance: HUMAN IMMUNOGLOBULIN G
     Route: 065

REACTIONS (4)
  - Abdominal pain [Unknown]
  - Asthenia [Unknown]
  - Muscular weakness [Unknown]
  - Product dose omission issue [Unknown]
